FAERS Safety Report 21614075 (Version 2)
Quarter: 2022Q4

REPORT INFORMATION
  Report Type: Spontaneous
  Country: JP (occurrence: JP)
  Receive Date: 20221118
  Receipt Date: 20221208
  Transmission Date: 20230113
  Serious: Yes (Hospitalization)
  Sender: FDA-Public Use
  Company Number: JP-MYLANLABS-2022M1124404

PATIENT
  Age: 54 Year
  Sex: Male

DRUGS (2)
  1. AMLODIPINE [Suspect]
     Active Substance: AMLODIPINE BESYLATE
     Indication: Product used for unknown indication
     Dosage: OVERDOSE ORAL ADMINISTRATION OF 10 MG AMLODIPINE AND 40 MG VALSARTAN (TOTAL 290 TABLETS FROM THE PAC
     Route: 048
  2. VALSARTAN [Suspect]
     Active Substance: VALSARTAN
     Indication: Product used for unknown indication
     Dosage: OVERDOSE ORAL ADMINISTRATION OF 10 MG AMLODIPINE AND 40 MG VALSARTAN (TOTAL 290 TABLETS FROM THE PAC

REACTIONS (3)
  - Dyspnoea [Recovered/Resolved]
  - Shock [Recovered/Resolved]
  - Intentional overdose [Unknown]
